FAERS Safety Report 5692073-3 (Version None)
Quarter: 2008Q2

REPORT INFORMATION
  Report Type: 
  Country: None (occurrence: None)
  Receive Date: 20080402
  Receipt Date: 20080303
  Transmission Date: 20081010
  Serious: Yes (Hospitalization, Other)
  Sender: FDA-Public Use
  Company Number: US-PFIZER INC-2008011842

PATIENT
  Sex: Female
  Weight: 49.9 kg

DRUGS (7)
  1. CHANTIX [Suspect]
     Indication: SMOKING CESSATION THERAPY
  2. NEURONTIN [Suspect]
  3. PROVIGIL [Suspect]
  4. AMBIEN [Suspect]
  5. DITROPAN [Suspect]
  6. EFFEXOR [Suspect]
  7. ALCOHOL [Concomitant]

REACTIONS (2)
  - DISTURBANCE IN SOCIAL BEHAVIOUR [None]
  - INTENTIONAL DRUG MISUSE [None]
